FAERS Safety Report 9399152 (Version 1)
Quarter: 2013Q3

REPORT INFORMATION
  Report Type: Spontaneous
  Country: CA (occurrence: CA)
  Receive Date: 20130715
  Receipt Date: 20130715
  Transmission Date: 20140515
  Serious: Yes (Disabling)
  Sender: FDA-Public Use
  Company Number: CA-ROCHE-1247845

PATIENT
  Age: 53 Year
  Sex: Female
  Weight: 54 kg

DRUGS (10)
  1. CEFTRIAXONE [Suspect]
     Indication: PRODUCT USED FOR UNKNOWN INDICATION
     Dosage: POWDER FOR SOLUTION INTRAMUSCULAR
     Route: 030
  2. PRIMAXIN [Interacting]
     Indication: PRODUCT USED FOR UNKNOWN INDICATION
     Dosage: POWDER FOR SOLUTION INTRAVENOUS
     Route: 042
  3. FLUCONAZOLE [Concomitant]
     Route: 065
  4. FLUTICASONE [Concomitant]
     Route: 065
  5. FUROSEMIDE [Concomitant]
     Route: 065
  6. LEVOTHYROXINE [Concomitant]
     Route: 065
  7. METOCLOPRAMIDE [Concomitant]
     Route: 065
  8. RANITIDINE [Concomitant]
     Route: 065
  9. SALBUTAMOL [Concomitant]
     Route: 065
  10. SALMETEROL [Concomitant]
     Route: 065

REACTIONS (3)
  - Drug interaction [Unknown]
  - Clonic convulsion [Recovered/Resolved]
  - Tremor [Recovered/Resolved]
